FAERS Safety Report 13281190 (Version 5)
Quarter: 2017Q3

REPORT INFORMATION
  Report Type: Spontaneous
  Country: JP (occurrence: JP)
  Receive Date: 20170301
  Receipt Date: 20170705
  Transmission Date: 20171127
  Serious: Yes (Death, Other)
  Sender: FDA-Public Use
  Company Number: JP-AMGEN-JPNSP2017031239

PATIENT
  Age: 68 Year
  Sex: Male
  Weight: 63 kg

DRUGS (18)
  1. 5-FU [Concomitant]
     Active Substance: FLUOROURACIL
     Indication: RECTAL CANCER
     Dosage: UNK
     Route: 042
     Dates: start: 20110104
  2. 5-FU [Concomitant]
     Active Substance: FLUOROURACIL
     Dosage: UNK, Q2WK
     Route: 042
     Dates: start: 20161025, end: 20161121
  3. ALOXI [Concomitant]
     Active Substance: PALONOSETRON HYDROCHLORIDE
     Indication: RECTAL CANCER
     Dosage: 0.75 MG, Q2WEEKS
     Route: 041
     Dates: start: 20120528, end: 20161121
  4. LEVOFOLINATE [Concomitant]
     Active Substance: LEVOLEUCOVORIN CALCIUM
     Dosage: 300 MG, Q2WEEKS
     Route: 041
     Dates: start: 20161025, end: 20161121
  5. DEXART [Concomitant]
     Active Substance: DEXAMETHASONE SODIUM PHOSPHATE
     Indication: RECTAL CANCER
     Dosage: 6.6 MG, Q2WEEKS
     Route: 041
     Dates: start: 20110104, end: 20161121
  6. RILMAZAFONE HYDROCHLORIDE [Concomitant]
     Active Substance: RILMAZAFONE HYDROCHLORIDE
     Dosage: UNK
     Route: 048
     Dates: start: 201603
  7. TRANEXAMIC ACID. [Concomitant]
     Active Substance: TRANEXAMIC ACID
     Dosage: UNK
     Route: 048
     Dates: start: 201603
  8. CAMPTO [Concomitant]
     Active Substance: IRINOTECAN
     Indication: RECTAL CANCER
     Dosage: UNK
     Route: 041
     Dates: start: 20150727
  9. CAMPTO [Concomitant]
     Active Substance: IRINOTECAN
     Dosage: 100 MG, Q2WEEKS
     Route: 041
     Dates: start: 20161025, end: 20161121
  10. ADOAIR [Concomitant]
     Active Substance: FLUTICASONE PROPIONATE\SALMETEROL XINAFOATE
     Indication: CHRONIC OBSTRUCTIVE PULMONARY DISEASE
     Dosage: 1 UNK, BID
     Route: 050
     Dates: start: 20131210
  11. SPIRIVA [Concomitant]
     Active Substance: TIOTROPIUM BROMIDE MONOHYDRATE
     Indication: CHRONIC OBSTRUCTIVE PULMONARY DISEASE
     Dosage: 5 MUG, QD
     Route: 050
     Dates: start: 20131210
  12. LEVOFOLINATE [Concomitant]
     Active Substance: LEVOLEUCOVORIN CALCIUM
     Indication: RECTAL CANCER
     Dosage: UNK
     Route: 041
     Dates: start: 20110104
  13. URIEF [Concomitant]
     Active Substance: SILODOSIN
     Indication: BENIGN PROSTATIC HYPERPLASIA
     Dosage: 4 MG, BID
     Route: 048
     Dates: start: 20100903, end: 20170212
  14. VECTIBIX [Suspect]
     Active Substance: PANITUMUMAB
     Indication: RECTAL CANCER
     Dosage: 380 MG, Q2WEEKS
     Route: 041
     Dates: start: 20161025, end: 20161121
  15. PROEMEND [Concomitant]
     Active Substance: FOSAPREPITANT
     Indication: RECTAL CANCER
     Dosage: 150 MG, Q2WEEKS
     Route: 041
     Dates: start: 20120528, end: 20161121
  16. OXYCONTIN [Concomitant]
     Active Substance: OXYCODONE HYDROCHLORIDE
     Indication: PAIN
     Dosage: 120 MG, TID
     Route: 048
     Dates: start: 20141201, end: 20170214
  17. OXINORM [Concomitant]
     Active Substance: OXYCODONE HYDROCHLORIDE
     Indication: PAIN
     Dosage: 10 MG, UNK
     Route: 048
     Dates: start: 20141201, end: 20170214
  18. CARBAZOCHROME SODIUM SULFONATE [Concomitant]
     Active Substance: CARBAZOCHROME SODIUM SULFONATE
     Dosage: UNK
     Route: 048
     Dates: start: 201603

REACTIONS (2)
  - Stevens-Johnson syndrome [Recovering/Resolving]
  - Disease progression [Fatal]

NARRATIVE: CASE EVENT DATE: 20161205
